FAERS Safety Report 23998429 (Version 2)
Quarter: 2024Q3

REPORT INFORMATION
  Report Type: Report from Study
  Country: US (occurrence: None)
  Receive Date: 20240621
  Receipt Date: 20240705
  Transmission Date: 20241017
  Serious: Yes (Death, Life-Threatening, Hospitalization, Other)
  Sender: ASTRAZENECA
  Company Number: 2024A140372

PATIENT
  Age: 26081 Day
  Sex: Male
  Weight: 117 kg

DRUGS (4)
  1. FARXIGA [Suspect]
     Active Substance: DAPAGLIFLOZIN PROPANEDIOL
     Indication: Type 2 diabetes mellitus
     Route: 048
  2. FARXIGA [Suspect]
     Active Substance: DAPAGLIFLOZIN PROPANEDIOL
     Indication: Type 2 diabetes mellitus
     Route: 048
     Dates: start: 20240601
  3. CRESTOR [Suspect]
     Active Substance: ROSUVASTATIN CALCIUM
     Route: 048
  4. CRESTOR [Suspect]
     Active Substance: ROSUVASTATIN CALCIUM
     Route: 048
     Dates: start: 20230513

REACTIONS (47)
  - Cardiac arrest [Fatal]
  - Glomerular filtration rate decreased [Unknown]
  - Acute kidney injury [Unknown]
  - Ventricular fibrillation [Unknown]
  - Thrombocytopenia [Unknown]
  - Pulmonary oedema [Unknown]
  - Ascites [Unknown]
  - Sepsis [Fatal]
  - Cardiac failure chronic [Fatal]
  - Respiratory failure [Fatal]
  - Septic shock [Unknown]
  - Renal tubular necrosis [Unknown]
  - Unresponsive to stimuli [Unknown]
  - Escherichia bacteraemia [Unknown]
  - Metabolic acidosis [Unknown]
  - Acute respiratory failure [Unknown]
  - Ischaemic cardiomyopathy [Fatal]
  - Blood glucose increased [Unknown]
  - Renal impairment [Unknown]
  - Blood creatine increased [Unknown]
  - Ejection fraction decreased [Unknown]
  - Blood sodium decreased [Unknown]
  - Pyrexia [Unknown]
  - Urinary tract infection [Unknown]
  - Tachycardia [Unknown]
  - Feeling abnormal [Unknown]
  - Hyponatraemia [Unknown]
  - Hyperglycaemia [Unknown]
  - Blood potassium decreased [Unknown]
  - Blood calcium decreased [Unknown]
  - Cardiomegaly [Unknown]
  - White blood cell count decreased [Unknown]
  - Platelet disorder [Unknown]
  - Blood urea increased [Unknown]
  - Leukopenia [Unknown]
  - Electrolyte imbalance [Unknown]
  - Arrhythmia [Unknown]
  - Palpitations [Unknown]
  - Swelling [Unknown]
  - Oedema [Unknown]
  - Obesity [Unknown]
  - Rhonchi [Unknown]
  - Crepitations [Unknown]
  - Chest expansion decreased [Unknown]
  - Heart rate irregular [Unknown]
  - Cardiac murmur [Unknown]
  - Hypertension [Unknown]

NARRATIVE: CASE EVENT DATE: 20240601
